FAERS Safety Report 5336274-2 (Version None)
Quarter: 2007Q2

REPORT INFORMATION
  Report Type: 
  Country: None (occurrence: None)
  Receive Date: 20070315
  Receipt Date: 20061201
  Transmission Date: 20071010
  Serious: No
  Sender: FDA-Public Use
  Company Number: BDI-008914

PATIENT
  Age: 52 Year
  Sex: Male
  Weight: 63.64 kg

DRUGS (2)
  1. MULTIHANCE [Suspect]
     Indication: HEAD INJURY
     Dosage: 14ML ONCE IV
     Route: 042
     Dates: start: 20061128, end: 20061128
  2. MULTIHANCE [Suspect]
     Indication: NUCLEAR MAGNETIC RESONANCE IMAGING BRAIN
     Dosage: 14ML ONCE IV
     Route: 042
     Dates: start: 20061128, end: 20061128

REACTIONS (2)
  - RASH [None]
  - URTICARIA [None]
